FAERS Safety Report 4747392-1 (Version None)
Quarter: 2005Q3

REPORT INFORMATION
  Report Type: 
  Country: None (occurrence: None)
  Receive Date: 20050815
  Receipt Date: 20050609
  Transmission Date: 20060218
  Serious: No
  Sender: FDA-Public Use
  Company Number: USA050598405

PATIENT
  Age: 69 Year
  Sex: Male

DRUGS (2)
  1. CIALIS [Suspect]
     Indication: ERECTILE DYSFUNCTION
     Dosage: 20 MG
     Dates: start: 20050517
  2. ASPIRIN [Concomitant]

REACTIONS (4)
  - ABNORMAL SENSATION IN EYE [None]
  - FLUSHING [None]
  - HEADACHE [None]
  - NASAL CONGESTION [None]
